FAERS Safety Report 15011636 (Version 1)
Quarter: 2018Q2

REPORT INFORMATION
  Report Type: Spontaneous
  Country: US (occurrence: US)
  Receive Date: 20180529
  Receipt Date: 20180529
  Transmission Date: 20180711
  Serious: No
  Sender: FDA-Public Use
  Company Number: None

PATIENT

DRUGS (2)
  1. LIDOCAINE HCL 2% + EPINEPHRINE 1:100,000 INJ. 20ML MULTIPLE-DOSE VIAL [Suspect]
     Active Substance: EPINEPHRINE\LIDOCAINE HYDROCHLORIDE
  2. LIDOCAINE HCL 2% + EPINEPHRINE 1:200,000 INJ. 20ML SINGLE-DOSE VIAL [Suspect]
     Active Substance: EPINEPHRINE\LIDOCAINE HYDROCHLORIDE

REACTIONS (2)
  - Product appearance confusion [None]
  - Product packaging confusion [None]

NARRATIVE: CASE EVENT DATE: 20180515
